FAERS Safety Report 9992538 (Version 2)
Quarter: 2015Q1

REPORT INFORMATION
  Report Type: Spontaneous
  Country: DK (occurrence: DK)
  Receive Date: 20140310
  Receipt Date: 20150326
  Transmission Date: 20150721
  Serious: Yes (Other)
  Sender: FDA-Public Use
  Company Number: PHHY2014DK028669

PATIENT
  Age: 77 Year
  Sex: Male

DRUGS (2)
  1. ZOMETA [Suspect]
     Active Substance: ZOLEDRONIC ACID
     Indication: PROSTATE CANCER METASTATIC
     Dosage: STYRKE: 4 MG/100 ML.
     Route: 042
     Dates: start: 20120713, end: 20121212
  2. XGEVA [Suspect]
     Active Substance: DENOSUMAB
     Indication: PROSTATE CANCER METASTATIC
     Dosage: STYRKE: 120 MG, MOTHLY
     Route: 058
     Dates: start: 20120810, end: 20131001

REACTIONS (6)
  - Pain [Unknown]
  - Erythema [Unknown]
  - Swelling [Unknown]
  - Infection [Unknown]
  - Osteonecrosis of jaw [Not Recovered/Not Resolved]
  - Fistula [Unknown]

NARRATIVE: CASE EVENT DATE: 20131031
